FAERS Safety Report 15683208 (Version 2)
Quarter: 2019Q1

REPORT INFORMATION
  Report Type: Spontaneous
  Country: BR (occurrence: BR)
  Receive Date: 20181204
  Receipt Date: 20190107
  Transmission Date: 20190417
  Serious: No
  Sender: FDA-Public Use
  Company Number: BR-ROCHE-2223962

PATIENT
  Sex: Female

DRUGS (5)
  1. PRADAXA [Concomitant]
     Active Substance: DABIGATRAN ETEXILATE MESYLATE
  2. RIVOTRIL [Suspect]
     Active Substance: CLONAZEPAM
     Indication: TENSION
     Dosage: 1/2 AS REQUIRED
     Route: 065
     Dates: start: 2016
  3. RIVOTRIL [Suspect]
     Active Substance: CLONAZEPAM
     Indication: INSOMNIA
  4. RIVOTRIL [Suspect]
     Active Substance: CLONAZEPAM
     Indication: HYPERTENSION
  5. ARTROLIVE [Concomitant]
     Active Substance: CHONDROITIN SULFATE (BOVINE)\GLUCOSAMINE SULFATE
     Indication: CARTILAGE ATROPHY

REACTIONS (6)
  - Dizziness [Recovered/Resolved]
  - Head injury [Recovered/Resolved]
  - Intentional product use issue [Unknown]
  - Fall [Unknown]
  - Off label use [Unknown]
  - Somnolence [Not Recovered/Not Resolved]
